FAERS Safety Report 5322927-9 (Version None)
Quarter: 2007Q1

REPORT INFORMATION
  Report Type: 
  Country: None (occurrence: None)
  Receive Date: 20070222
  Receipt Date: 20061113
  Transmission Date: 20070707
  Serious: Yes (Other)
  Sender: FDA-Public Use
  Company Number: 2006139350

PATIENT
  Age: 72 Year
  Sex: Male
  Weight: 88.4514 kg

DRUGS (12)
  1. EXUBERA [Suspect]
     Indication: DIABETES MELLITUS NON-INSULIN-DEPENDENT
     Dosage: 3 MG (1 MG,1 IN 1 D),INHALATION
     Route: 055
     Dates: start: 20061001
  2. EXUBERA [Suspect]
  3. EXUBERA [Suspect]
  4. TOPROL-XL [Concomitant]
  5. FUROSEMIDE [Concomitant]
  6. ASPIRIN [Concomitant]
  7. ACCUPRIL [Concomitant]
  8. VYTORIN [Concomitant]
  9. PRILOSEC [Concomitant]
  10. TRICOR [Concomitant]
  11. GLIPIZIDE [Concomitant]
  12. OMACOR (OMEGA-3 MARINE TRIGLYCERIDES) [Concomitant]

REACTIONS (1)
  - BLOOD GLUCOSE INCREASED [None]
